FAERS Safety Report 9019454 (Version 1)
Quarter: 2013Q1

REPORT INFORMATION
  Report Type: Spontaneous
  Country: BG (occurrence: BG)
  Receive Date: 20130118
  Receipt Date: 20130118
  Transmission Date: 20140127
  Serious: Yes (Hospitalization)
  Sender: FDA-Public Use
  Company Number: BG-ASTRAZENECA-2013SE01193

PATIENT
  Age: 74 Year
  Sex: Male

DRUGS (1)
  1. VIMOVO [Suspect]
     Indication: PERIARTHRITIS
     Dosage: 500 MG/20 MG, ONE TABLET TWICE DAILY
     Route: 048
     Dates: start: 201212

REACTIONS (3)
  - Haemoglobin decreased [Unknown]
  - Small intestinal haemorrhage [Unknown]
  - Melaena [Unknown]
